FAERS Safety Report 8175350-6 (Version None)
Quarter: 2012Q1

REPORT INFORMATION
  Report Type: 
  Country: None (occurrence: None)
  Receive Date: 20120229
  Receipt Date: 20120224
  Transmission Date: 20120608
  Serious: Yes (Life-Threatening, Hospitalization, Other)
  Sender: FDA-Public Use
  Company Number: DE-PFIZER INC-2012022399

PATIENT
  Age: 43 Year
  Sex: Male
  Weight: 72 kg

DRUGS (3)
  1. METHADONE HCL [Suspect]
     Indication: DRUG DEPENDENCE
     Dosage: 60 MG, UNK
     Route: 048
     Dates: start: 20080401
  2. LORAZEPAM [Suspect]
     Indication: SELF-MEDICATION
     Dosage: 3.5 MG, UNK
     Route: 048
     Dates: start: 20101213
  3. LYRICA [Suspect]
     Indication: ANXIETY DISORDER
     Dosage: 2400 TO 2700 MG SINGLE DOSE
     Route: 048
     Dates: start: 20101213, end: 20101214

REACTIONS (3)
  - COMA [None]
  - POLYSUBSTANCE DEPENDENCE [None]
  - OVERDOSE [None]
